FAERS Safety Report 5103149-3 (Version None)
Quarter: 2006Q3

REPORT INFORMATION
  Report Type: 
  Country: None (occurrence: None)
  Receive Date: 20060908
  Receipt Date: 20060907
  Transmission Date: 20061208
  Serious: Yes (Hospitalization, Other)
  Sender: FDA-Public Use
  Company Number: 2006AL002514

PATIENT
  Age: 54 Year
  Sex: Female

DRUGS (4)
  1. DIAZEPAM [Suspect]
  2. ALCOHOL [Concomitant]
  3. PARACETAMOL [Concomitant]
  4. COAPROVEL [Concomitant]

REACTIONS (5)
  - ELECTROCARDIOGRAM ST SEGMENT DEPRESSION [None]
  - HYPOTENSION [None]
  - MULTIPLE DRUG OVERDOSE [None]
  - SINUS TACHYCARDIA [None]
  - THERAPY NON-RESPONDER [None]
